FAERS Safety Report 9557290 (Version 2)
Quarter: 2014Q2

REPORT INFORMATION
  Report Type: Spontaneous
  Country: US (occurrence: US)
  Receive Date: 20130926
  Receipt Date: 20140508
  Transmission Date: 20141212
  Serious: Yes (Death, Hospitalization, Disabling, Other)
  Sender: FDA-Public Use
  Company Number: US-009507513-1309USA012820

PATIENT
  Sex: Male

DRUGS (1)
  1. JANUVIA [Suspect]
     Dosage: 100 MG, UNK
     Route: 048

REACTIONS (37)
  - Pancreatic carcinoma [Fatal]
  - Pancreatic enlargement [Unknown]
  - Cardiac arrest [Unknown]
  - Sepsis [Unknown]
  - Malignant ascites [Unknown]
  - Ascites [Unknown]
  - Dyspnoea [Unknown]
  - Pleural effusion [Unknown]
  - Pneumonia [Unknown]
  - Clostridium difficile colitis [Unknown]
  - Gastrointestinal haemorrhage [Unknown]
  - Hyperkalaemia [Unknown]
  - Acidosis [Unknown]
  - Renal failure acute [Unknown]
  - Renal failure chronic [Not Recovered/Not Resolved]
  - Knee operation [Unknown]
  - Nephrolithiasis [Unknown]
  - Weight decreased [Unknown]
  - Gallbladder disorder [Unknown]
  - Hepatosplenomegaly [Unknown]
  - Lymphadenopathy [Unknown]
  - Gait disturbance [Unknown]
  - Cardiomegaly [Unknown]
  - Hypertensive nephropathy [Unknown]
  - Carbohydrate antigen 19-9 increased [Unknown]
  - Hypovolaemia [Unknown]
  - Iron deficiency anaemia [Unknown]
  - Diaphragmatic hernia [Unknown]
  - Hypercholesterolaemia [Unknown]
  - Coronary artery disease [Unknown]
  - Liver disorder [Unknown]
  - Atrial fibrillation [Unknown]
  - Cellulitis [Unknown]
  - Shoulder operation [Unknown]
  - Diaphragmatic hernia [Unknown]
  - Hypertension [Unknown]
  - Diabetes mellitus [Unknown]
